FAERS Safety Report 4708428-7 (Version None)
Quarter: 2005Q3

REPORT INFORMATION
  Report Type: 
  Country: None (occurrence: None)
  Receive Date: 20050706
  Receipt Date: 20050624
  Transmission Date: 20060218
  Serious: Yes (Other)
  Sender: FDA-Public Use
  Company Number: KII-2005-0017219

PATIENT
  Age: 14 Year
  Sex: Female

DRUGS (1)
  1. MORPHINE SULFATE [Suspect]
     Dosage: SEE TEXT, ORAL
     Route: 048

REACTIONS (2)
  - COMA [None]
  - DYSPNOEA [None]
